FAERS Safety Report 23405271 (Version 4)
Quarter: 2024Q1

REPORT INFORMATION
  Report Type: Report from Study
  Country: US (occurrence: US)
  Receive Date: 20240116
  Receipt Date: 20240319
  Transmission Date: 20240409
  Serious: Yes (Hospitalization, Other)
  Sender: FDA-Public Use
  Company Number: US-AUROBINDO-AUR-APL-2024-001158

PATIENT
  Age: 54 Year
  Sex: Male
  Weight: 73.7 kg

DRUGS (2)
  1. BELINOSTAT [Suspect]
     Active Substance: BELINOSTAT
     Indication: Haematopoietic neoplasm
     Dosage: 7375 MILLIGRAM
     Route: 065
     Dates: start: 20231205, end: 20231209
  2. TAZEMETOSTAT [Suspect]
     Active Substance: TAZEMETOSTAT
     Indication: Haematopoietic neoplasm
     Dosage: 12000 MILLIGRAM
     Route: 065
     Dates: start: 20231206, end: 20231225

REACTIONS (9)
  - Decreased appetite [Recovered/Resolved with Sequelae]
  - Malaise [Recovered/Resolved with Sequelae]
  - Fatigue [Recovered/Resolved with Sequelae]
  - Hypoxia [Recovered/Resolved with Sequelae]
  - Pneumonia [Recovered/Resolved with Sequelae]
  - Pyrexia [Unknown]
  - Alanine aminotransferase increased [Unknown]
  - Gastrooesophageal reflux disease [Unknown]
  - Aspartate aminotransferase increased [Unknown]

NARRATIVE: CASE EVENT DATE: 20231207
